FAERS Safety Report 10637492 (Version 1)
Quarter: 2014Q4

REPORT INFORMATION
  Report Type: Spontaneous
  Country: ES (occurrence: None)
  Receive Date: 20141205
  Receipt Date: 20141205
  Transmission Date: 20150529
  Serious: No
  Sender: FDA-Public Use
  Company Number: None

PATIENT
  Age: 31 Year
  Sex: Female
  Weight: 52 kg

DRUGS (1)
  1. LARIAM [Suspect]
     Active Substance: MEFLOQUINE HYDROCHLORIDE
     Indication: FOREIGN TRAVEL
     Dosage: 1 PILL PER WEEK
     Dates: start: 20140926, end: 20141010

REACTIONS (8)
  - Diarrhoea [None]
  - Unevaluable event [None]
  - Headache [None]
  - Gastric disorder [None]
  - Pain [None]
  - Nausea [None]
  - Dizziness [None]
  - Nightmare [None]

NARRATIVE: CASE EVENT DATE: 20141011
